FAERS Safety Report 18851458 (Version 6)
Quarter: 2021Q2

REPORT INFORMATION
  Report Type: Report from Study
  Country: CZ (occurrence: CZ)
  Receive Date: 20210205
  Receipt Date: 20210527
  Transmission Date: 20210717
  Serious: Yes (Hospitalization)
  Sender: FDA-Public Use
  Company Number: NVSC2021CZ021607

PATIENT
  Age: 61 Year
  Sex: Male
  Weight: 122 kg

DRUGS (18)
  1. ATORVASTATINUM [Concomitant]
     Active Substance: ATORVASTATIN
     Indication: HYPERLIPIDAEMIA
     Dosage: UNK
     Route: 065
     Dates: start: 20190427
  2. COLECALCIFEROLUM [Concomitant]
     Indication: HYPERPARATHYROIDISM SECONDARY
     Dosage: UNK
     Route: 065
     Dates: start: 20190503, end: 20210130
  3. MYCOPHENOLATE MOFETIL. [Suspect]
     Active Substance: MYCOPHENOLATE MOFETIL
     Indication: RENAL TRANSPLANT
     Dosage: 500 MG, BID
     Route: 048
     Dates: start: 20190426, end: 20210128
  4. PANTOPRAZOLUM [Concomitant]
     Active Substance: PANTOPRAZOLE
     Indication: PROPHYLAXIS AGAINST GASTROINTESTINAL ULCER
     Dosage: UNK
     Route: 065
     Dates: start: 20200106
  5. INSULINUM GLARGINUM [Concomitant]
     Indication: DIABETIC METABOLIC DECOMPENSATION
     Dosage: UNK
     Route: 065
     Dates: start: 20190801, end: 20210216
  6. INSULINUM GLARGINUM [Concomitant]
     Dosage: UNK
     Route: 065
     Dates: start: 20210222, end: 20210310
  7. ACETYLSALICYLIC ACID [Concomitant]
     Active Substance: ASPIRIN
     Indication: THROMBOSIS PROPHYLAXIS
     Dosage: UNK
     Route: 065
     Dates: start: 20190725
  8. ISCALIMAB [Suspect]
     Active Substance: ISCALIMAB
     Indication: RENAL TRANSPLANT
     Dosage: 22.3 ML, QD
     Route: 042
     Dates: start: 20190426, end: 20210114
  9. AMLODIPIN [Concomitant]
     Active Substance: AMLODIPINE BESYLATE
     Indication: HYPERTENSION
     Dosage: UNK
     Route: 065
     Dates: start: 20191112, end: 20210217
  10. INSULINUM GLARGINUM [Concomitant]
     Indication: URINARY TRACT INFECTION
     Dosage: UNK
     Route: 065
     Dates: start: 20210218, end: 20210218
  11. INSULINUM GLARGINUM [Concomitant]
     Indication: DIABETES MELLITUS
     Dosage: UNK
     Route: 065
     Dates: start: 20210219, end: 20210219
  12. PREDNISONE. [Concomitant]
     Active Substance: PREDNISONE
     Indication: PROPHYLAXIS AGAINST TRANSPLANT REJECTION
     Dosage: UNK
     Route: 065
     Dates: start: 20190705
  13. INSULINUM LISPRUM [Concomitant]
     Indication: DIABETIC METABOLIC DECOMPENSATION
     Dosage: UNK
     Route: 065
     Dates: start: 20190802
  14. ENOXAPARIN [Concomitant]
     Active Substance: ENOXAPARIN
     Indication: THROMBOSIS PROPHYLAXIS
     Dosage: UNK
     Route: 065
     Dates: start: 20210128, end: 20210218
  15. PERINDOPRILUM [Concomitant]
     Indication: HYPERTENSION
     Dosage: UNK
     Route: 065
     Dates: start: 20190718, end: 20210218
  16. LANSOPRAZOLUM [Concomitant]
     Indication: PROPHYLAXIS AGAINST GASTROINTESTINAL ULCER
     Dosage: UNK
     Route: 065
     Dates: start: 20190428
  17. MYCOPHENOLATE MOFETIL. [Suspect]
     Active Substance: MYCOPHENOLATE MOFETIL
     Dosage: 250 MG, BID
     Route: 048
     Dates: start: 20210311
  18. ALLOPURINOLUM [Concomitant]
     Indication: HYPERURICAEMIA
     Dosage: UNK
     Route: 065
     Dates: start: 20191011, end: 20210130

REACTIONS (1)
  - Urinary tract infection [Recovered/Resolved with Sequelae]

NARRATIVE: CASE EVENT DATE: 20210128
